FAERS Safety Report 21660063 (Version 1)
Quarter: 2022Q4

REPORT INFORMATION
  Report Type: Spontaneous
  Country: US (occurrence: US)
  Receive Date: 20221130
  Receipt Date: 20221130
  Transmission Date: 20230112
  Serious: Yes (Other)
  Sender: FDA-Public Use
  Company Number: US-BRISTOL-MYERS SQUIBB COMPANY-2022-144956

PATIENT
  Age: 90 Year
  Sex: Male

DRUGS (16)
  1. REVLIMID [Suspect]
     Active Substance: LENALIDOMIDE
     Indication: Plasma cell myeloma
     Dosage: 21 DAYS
     Route: 048
     Dates: start: 20221108
  2. DEXAMETHASONE [Concomitant]
     Active Substance: DEXAMETHASONE
  3. VITAMINS [Concomitant]
     Active Substance: VITAMINS
  4. ASPIRIN [Concomitant]
     Active Substance: ASPIRIN
  5. ACYCLOVIR [Concomitant]
     Active Substance: ACYCLOVIR
  6. PROSCAR [Concomitant]
     Active Substance: FINASTERIDE
  7. VITAMIN C [Concomitant]
     Active Substance: ASCORBIC ACID
  8. VITAMIN D3 [Concomitant]
     Active Substance: CHOLECALCIFEROL
  9. ZINC [Concomitant]
     Active Substance: ZINC
  10. BENADRYL ALLERGY [Concomitant]
     Active Substance: DIPHENHYDRAMINE HYDROCHLORIDE
  11. DARZALEX [Concomitant]
     Active Substance: DARATUMUMAB
     Dosage: IOOMG/5ML INJ, 1 VIAL
  12. ACETAMINOPHEN\CAFFEINE [Concomitant]
     Active Substance: ACETAMINOPHEN\CAFFEINE
  13. ZOMETA [Concomitant]
     Active Substance: ZOLEDRONIC ACID
     Dosage: 4MG/5ML INJ, 5ML
  14. CALCIUM\CHOLECALCIFEROL [Concomitant]
     Active Substance: CALCIUM\CHOLECALCIFEROL
     Dosage: 500MG/200UNLT TABLETS
  15. OMEPRAZOLE [Concomitant]
     Active Substance: OMEPRAZOLE
  16. TUMS CHEWIES [Concomitant]

REACTIONS (1)
  - Prostate cancer [Unknown]

NARRATIVE: CASE EVENT DATE: 20221114
